FAERS Safety Report 18452965 (Version 1)
Quarter: 2020Q4

REPORT INFORMATION
  Report Type: Spontaneous
  Country: US (occurrence: US)
  Receive Date: 20201102
  Receipt Date: 20201102
  Transmission Date: 20210114
  Serious: Yes (Other)
  Sender: FDA-Public Use
  Company Number: US-GUERBET-US-20200150

PATIENT
  Age: 58 Year
  Sex: Female

DRUGS (1)
  1. LIPIODOL [Suspect]
     Active Substance: ETHIODIZED OIL
     Indication: LYMPHANGIOGRAM
     Route: 065

REACTIONS (2)
  - Ischaemic stroke [Unknown]
  - Cerebral artery embolism [Unknown]
